FAERS Safety Report 13098254 (Version 3)
Quarter: 2017Q1

REPORT INFORMATION
  Report Type: Report from Study
  Country: None (occurrence: BR)
  Receive Date: 20170109
  Receipt Date: 20170125
  Transmission Date: 20170428
  Serious: Yes (Hospitalization, Other)
  Sender: FDA-Public Use
  Company Number: BR-ABBVIE-17K-020-1829820-00

PATIENT
  Age: 30 Year
  Sex: Male
  Weight: 135 kg

DRUGS (3)
  1. TRAMADOL HYDROCHLORIDE. [Concomitant]
     Active Substance: TRAMADOL HYDROCHLORIDE
     Indication: PAIN
     Route: 048
  2. HUMIRA [Suspect]
     Active Substance: ADALIMUMAB
     Indication: ANKYLOSING SPONDYLITIS
     Route: 058
     Dates: start: 20130520, end: 20161216
  3. RIVAROXABAN [Concomitant]
     Active Substance: RIVAROXABAN
     Indication: PRODUCT USED FOR UNKNOWN INDICATION
     Route: 048
     Dates: start: 2015

REACTIONS (10)
  - Apnoea [Not Recovered/Not Resolved]
  - Pyrexia [Recovering/Resolving]
  - Dermatitis [Not Recovered/Not Resolved]
  - Insomnia [Not Recovered/Not Resolved]
  - Pain of skin [Not Recovered/Not Resolved]
  - Malaise [Recovering/Resolving]
  - Localised infection [Not Recovered/Not Resolved]
  - Skin infection [Recovered/Resolved]
  - Syncope [Unknown]
  - Arthropod bite [Not Recovered/Not Resolved]

NARRATIVE: CASE EVENT DATE: 2015
